FAERS Safety Report 15487793 (Version 2)
Quarter: 2018Q4

REPORT INFORMATION
  Report Type: Spontaneous
  Country: US (occurrence: US)
  Receive Date: 20181011
  Receipt Date: 20181031
  Transmission Date: 20190205
  Serious: No
  Sender: FDA-Public Use
  Company Number: US-PACIRA PHARMACEUTICALS, INC.-2018EXPUS00660

PATIENT

DRUGS (2)
  1. EXPAREL [Suspect]
     Active Substance: BUPIVACAINE
     Indication: NERVE BLOCK
     Dosage: 133 MG, SINGLE
     Dates: start: 20181002, end: 20181002
  2. BUPIVACAINE. [Suspect]
     Active Substance: BUPIVACAINE
     Indication: NERVE BLOCK
     Dosage: 50 MG, SINGLE
     Dates: start: 20181002, end: 20181002

REACTIONS (1)
  - Phrenic nerve paralysis [Recovered/Resolved]

NARRATIVE: CASE EVENT DATE: 20181002
